FAERS Safety Report 4878975-6 (Version None)
Quarter: 2006Q1

REPORT INFORMATION
  Report Type: 
  Country: None (occurrence: None)
  Receive Date: 20060112
  Receipt Date: 20060103
  Transmission Date: 20060701
  Serious: Yes (Hospitalization)
  Sender: FDA-Public Use
  Company Number: US-MERCK-0601USA00266

PATIENT
  Age: 53 Year
  Sex: Male
  Weight: 83 kg

DRUGS (10)
  1. VIOXX [Suspect]
     Indication: PAIN IN EXTREMITY
     Route: 048
     Dates: start: 20000302, end: 20000615
  2. VIOXX [Suspect]
     Route: 048
     Dates: start: 20000724, end: 20010722
  3. VIOXX [Suspect]
     Route: 048
     Dates: start: 20010723, end: 20020214
  4. VIOXX [Suspect]
     Route: 048
     Dates: start: 20020305, end: 20031224
  5. VIOXX [Suspect]
     Route: 048
     Dates: start: 20040213, end: 20040902
  6. VIOXX [Suspect]
     Indication: OEDEMA PERIPHERAL
     Route: 048
     Dates: start: 20000302, end: 20000615
  7. VIOXX [Suspect]
     Route: 048
     Dates: start: 20000724, end: 20010722
  8. VIOXX [Suspect]
     Route: 048
     Dates: start: 20010723, end: 20020214
  9. VIOXX [Suspect]
     Route: 048
     Dates: start: 20020305, end: 20031224
  10. VIOXX [Suspect]
     Route: 048
     Dates: start: 20040213, end: 20040902

REACTIONS (4)
  - CARDIAC DISORDER [None]
  - CHEST PAIN [None]
  - MYOCARDIAL INFARCTION [None]
  - NEPHROLITHIASIS [None]
